FAERS Safety Report 6441227-7 (Version None)
Quarter: 2009Q4

REPORT INFORMATION
  Report Type: 
  Country: None (occurrence: None)
  Receive Date: 20091112
  Receipt Date: 20091103
  Transmission Date: 20100525
  Serious: Yes (Other)
  Sender: FDA-Public Use
  Company Number: 1000009927

PATIENT
  Sex: Female

DRUGS (1)
  1. SAVELLA [Suspect]

REACTIONS (1)
  - SYNCOPE [None]
